FAERS Safety Report 5706229-4 (Version None)
Quarter: 2008Q2

REPORT INFORMATION
  Report Type: 
  Country: None (occurrence: None)
  Receive Date: 20080415
  Receipt Date: 20080409
  Transmission Date: 20081010
  Serious: Yes (Other)
  Sender: FDA-Public Use
  Company Number: JP-BOEHRINGER INGELHEIM GMBH, GERMANY-2008-BP-05532NB

PATIENT
  Sex: Female

DRUGS (3)
  1. LENDORMIN D TABLETS [Suspect]
     Route: 048
  2. MICARDIS [Suspect]
     Route: 048
  3. DOGMATYL [Suspect]
     Route: 048

REACTIONS (2)
  - INTERSTITIAL LUNG DISEASE [None]
  - PULMONARY OEDEMA [None]
